FAERS Safety Report 22305012 (Version 1)
Quarter: 2023Q2

REPORT INFORMATION
  Report Type: Spontaneous
  Country: JP (occurrence: JP)
  Receive Date: 20230510
  Receipt Date: 20230510
  Transmission Date: 20230721
  Serious: Yes (Other)
  Sender: FDA-Public Use
  Company Number: JP-TAKEDA-2023TUS045498

PATIENT
  Age: 45 Year
  Sex: Male
  Weight: 60 kg

DRUGS (3)
  1. ANTI-INHIBITOR COAGULANT COMPLEX [Suspect]
     Active Substance: ANTI-INHIBITOR COAGULANT COMPLEX
     Indication: Factor VIII deficiency
     Dosage: 2000 INTERNATIONAL UNIT, QD
     Route: 065
  2. EMICIZUMAB [Concomitant]
     Active Substance: EMICIZUMAB
     Dosage: 1.5 MILLIGRAM/KILOGRAM, 1/WEEK
     Route: 065
     Dates: start: 201807
  3. EMICIZUMAB [Concomitant]
     Active Substance: EMICIZUMAB
     Dosage: 1.5 MILLIGRAM/KILOGRAM, Q2WEEKS
     Route: 065
     Dates: start: 201812

REACTIONS (1)
  - Drug ineffective [Unknown]
